FAERS Safety Report 4348463-4 (Version None)
Quarter: 2004Q2

REPORT INFORMATION
  Report Type: 
  Country: None (occurrence: None)
  Receive Date: 20040422
  Receipt Date: 20040413
  Transmission Date: 20050107
  Serious: Yes (Hospitalization)
  Sender: FDA-Public Use
  Company Number: 2004-02-1357

PATIENT
  Age: 74 Year
  Sex: Female
  Weight: 46 kg

DRUGS (7)
  1. INTRON A [Suspect]
     Indication: CHRONIC MYELOID LEUKAEMIA
     Dosage: 3 MIU/WK, INTRAMUSCULAR
     Route: 030
     Dates: start: 20031116, end: 20040207
  2. GLEEVEC [Suspect]
     Indication: CHRONIC MYELOID LEUKAEMIA
     Dosage: SEE IMAGE
     Route: 048
     Dates: start: 20031116, end: 20031116
  3. GLEEVEC [Suspect]
     Indication: CHRONIC MYELOID LEUKAEMIA
     Dosage: SEE IMAGE
     Route: 048
     Dates: start: 29931128, end: 20031201
  4. GLEEVEC [Suspect]
     Indication: CHRONIC MYELOID LEUKAEMIA
     Dosage: SEE IMAGE
     Route: 048
     Dates: start: 20031204, end: 20040209
  5. NITRODERM [Concomitant]
  6. GLYBURIDE [Concomitant]
  7. DIETARY INTERVENTION (NOS) [Concomitant]

REACTIONS (7)
  - BLOOD LACTATE DEHYDROGENASE INCREASED [None]
  - CEREBRAL INFARCTION [None]
  - DYSARTHRIA [None]
  - HAEMOGLOBIN DECREASED [None]
  - MONOPLEGIA [None]
  - MUSCULAR WEAKNESS [None]
  - WHITE BLOOD CELL COUNT DECREASED [None]
